FAERS Safety Report 5751744-0 (Version None)
Quarter: 2008Q2

REPORT INFORMATION
  Report Type: 
  Country: None (occurrence: None)
  Receive Date: 20080527
  Receipt Date: 20080513
  Transmission Date: 20081010
  Serious: Yes (Hospitalization)
  Sender: FDA-Public Use
  Company Number: 2008BI005434

PATIENT
  Age: 53 Year
  Sex: Male
  Weight: 72.5755 kg

DRUGS (7)
  1. AVONEX [Suspect]
     Indication: MULTIPLE SCLEROSIS
     Dosage: 30 UG;QW;IM
     Route: 030
     Dates: start: 20031004
  2. PLAVIX [Concomitant]
  3. LIPITOR [Concomitant]
  4. IMDUR [Concomitant]
  5. ALTACE [Concomitant]
  6. LASIX [Concomitant]
  7. MULTI-VITAMIN [Concomitant]

REACTIONS (9)
  - CONDITION AGGRAVATED [None]
  - DYSGRAPHIA [None]
  - FATIGUE [None]
  - HEARING IMPAIRED [None]
  - HYPOAESTHESIA [None]
  - MULTIPLE SCLEROSIS [None]
  - MUSCLE SPASMS [None]
  - PAIN [None]
  - VISION BLURRED [None]
